FAERS Safety Report 8495416-0 (Version None)
Quarter: 2012Q3

REPORT INFORMATION
  Report Type: 
  Country: None (occurrence: None)
  Receive Date: 20120709
  Receipt Date: 20120703
  Transmission Date: 20120928
  Serious: Yes (Hospitalization)
  Sender: FDA-Public Use
  Company Number: US-BAYER-2012-052077

PATIENT
  Age: 31 Year
  Sex: Female

DRUGS (8)
  1. LEVOTHYROXINE SODIUM [Concomitant]
  2. MIRALAX [Concomitant]
  3. YAZ [Suspect]
     Dosage: UNK
     Dates: start: 20080101, end: 20100501
  4. CLONAZEPAM [Concomitant]
     Dosage: UNK UNK, PRN
  5. OMEPRAZOLE [Concomitant]
  6. FLORASTOR [Concomitant]
  7. YASMIN [Suspect]
     Dosage: UNK
     Dates: start: 20060201, end: 20071201
  8. HYOSCYAMINE [Concomitant]
     Dosage: UNK UNK, PRN

REACTIONS (4)
  - DEEP VEIN THROMBOSIS [None]
  - PULMONARY EMBOLISM [None]
  - PAIN [None]
  - INJURY [None]
